FAERS Safety Report 18344409 (Version 1)
Quarter: 2020Q4

REPORT INFORMATION
  Report Type: Report from Study
  Country: GB (occurrence: GB)
  Receive Date: 20201005
  Receipt Date: 20201005
  Transmission Date: 20210114
  Serious: Yes (Life-Threatening, Hospitalization, Other)
  Sender: FDA-Public Use
  Company Number: GB-RECRO GAINESVILLE LLC-REPH-2020-000010

PATIENT
  Age: 62 Year
  Sex: Male

DRUGS (1)
  1. VERAPAMIL HYDROCHLORIDE SUSTAINED RELEASE [Suspect]
     Active Substance: VERAPAMIL HYDROCHLORIDE
     Dosage: UNK

REACTIONS (11)
  - Somnolence [Unknown]
  - Abdominal pain upper [Unknown]
  - Hypotension [Recovered/Resolved]
  - Overdose [Recovered/Resolved]
  - Respiratory acidosis [Recovered/Resolved]
  - Cardiac arrest [Recovered/Resolved]
  - Bradycardia [Recovered/Resolved]
  - Alanine aminotransferase increased [Recovered/Resolved]
  - Dyspnoea [Unknown]
  - Hypocalcaemia [Recovered/Resolved]
  - Brain injury [Recovered/Resolved with Sequelae]
